FAERS Safety Report 5841169-1 (Version None)
Quarter: 2008Q3

REPORT INFORMATION
  Report Type: 
  Country: None (occurrence: None)
  Receive Date: 20080807
  Receipt Date: 20080807
  Transmission Date: 20090109
  Serious: No
  Sender: FDA-Public Use
  Company Number: None

PATIENT
  Sex: Female
  Weight: 47.6277 kg

DRUGS (2)
  1. LEXAPRO [Suspect]
     Indication: ANXIETY
     Dosage: 10 MG DAILY PO
     Route: 048
     Dates: start: 20040701, end: 20080614
  2. LEXAPRO [Suspect]
     Indication: DEPRESSION
     Dosage: 10 MG DAILY PO
     Route: 048
     Dates: start: 20040701, end: 20080614

REACTIONS (7)
  - DRUG DEPENDENCE [None]
  - DRUG DETOXIFICATION [None]
  - DRUG WITHDRAWAL SYNDROME [None]
  - HEADACHE [None]
  - ILL-DEFINED DISORDER [None]
  - INSOMNIA [None]
  - NAUSEA [None]
